FAERS Safety Report 8017087-X (Version None)
Quarter: 2012Q1

REPORT INFORMATION
  Report Type: 
  Country: None (occurrence: None)
  Receive Date: 20120102
  Receipt Date: 20111230
  Transmission Date: 20120608
  Serious: Yes (Death)
  Sender: FDA-Public Use
  Company Number: PHHY2011GT113525

PATIENT
  Age: 96 Year
  Sex: Male

DRUGS (1)
  1. FORADIL [Suspect]
     Dosage: 12 UG, UNK

REACTIONS (1)
  - DEATH [None]
